FAERS Safety Report 6287497-X (Version None)
Quarter: 2009Q3

REPORT INFORMATION
  Report Type: 
  Country: None (occurrence: None)
  Receive Date: 20090727
  Receipt Date: 20090719
  Transmission Date: 20100115
  Serious: Yes (Other)
  Sender: FDA-Public Use
  Company Number: CHPA2009US15376

PATIENT
  Sex: Male

DRUGS (1)
  1. 4 WAY FAST ACTING NASAL SPRAY (NCH) (PHENYLEPHRINE) NASAL SPRAY [Suspect]
     Dosage: NASAL
     Route: 045

REACTIONS (3)
  - DRUG DEPENDENCE [None]
  - EUPHORIC MOOD [None]
  - INTENTIONAL DRUG MISUSE [None]
